FAERS Safety Report 10706547 (Version 1)
Quarter: 2015Q1

REPORT INFORMATION
  Report Type: Spontaneous
  Country: US (occurrence: None)
  Receive Date: 20150109
  Receipt Date: 20150109
  Transmission Date: 20150721
  Serious: Yes (Life-Threatening, Hospitalization)
  Sender: FDA-Public Use
  Company Number: US-H14001-15-00005

PATIENT
  Age: 8 Week
  Sex: Male

DRUGS (7)
  1. DEXAMETHASONE (DEXAMETHASONE SODIUM PHOSPHATE) (UNKNOWN) (DEXAMETHASONE SODIUM PHOSPHATE) [Suspect]
     Active Substance: DEXAMETHASONE
     Indication: HISTIOCYTOSIS HAEMATOPHAGIC
  2. FLUCYTOSINE (FLUCYTOSINE) (UNKNOWN) (FLUCYTOSINE) [Concomitant]
  3. CYCLOSPORINE. [Suspect]
     Active Substance: CYCLOSPORINE
     Indication: HISTIOCYTOSIS HAEMATOPHAGIC
  4. VORICONAZOLE (VORICONAZOLE) (UNKNOWN) (VORICONAZOLE) [Concomitant]
  5. ANAKINRA (ANAKINRA) (UNKNOWN) (ANAKINRA) [Concomitant]
  6. AMPHOTERICIN (AMPHOTERICIN B) (UNKNOWN) (AMPHOTERICIN B) [Concomitant]
  7. IMMUNOGLOBULIN (IMMUNOGLOBULIN HUMAN NORMAL) (UNKNOWN) (IMMUNOGLOBULIN HUMAN NORMAL) [Concomitant]

REACTIONS (6)
  - Candida sepsis [None]
  - Encephalitis fungal [None]
  - Hydrocephalus [None]
  - Multi-organ failure [None]
  - Partial seizures [None]
  - Septic shock [None]
